FAERS Safety Report 14612635 (Version 1)
Quarter: 2018Q1

REPORT INFORMATION
  Report Type: Report from Study
  Country: ES (occurrence: ES)
  Receive Date: 20180308
  Receipt Date: 20180308
  Transmission Date: 20180509
  Serious: Yes (Life-Threatening, Other)
  Sender: FDA-Public Use
  Company Number: ES-JNJFOC-20180306583

PATIENT

DRUGS (1)
  1. DARZALEX [Suspect]
     Active Substance: DARATUMUMAB
     Indication: PLASMA CELL MYELOMA

REACTIONS (15)
  - Anaemia [Unknown]
  - Infusion related reaction [Unknown]
  - Ocular hyperaemia [Unknown]
  - Tachycardia [Unknown]
  - Asthenia [Unknown]
  - Back pain [Unknown]
  - Cardiac failure congestive [Unknown]
  - Rhinitis allergic [Unknown]
  - Musculoskeletal pain [Unknown]
  - Hypertension [Unknown]
  - Abdominal discomfort [Unknown]
  - Constipation [Unknown]
  - Rhinorrhoea [Unknown]
  - Anxiety [Unknown]
  - Rash [Unknown]
